FAERS Safety Report 7677715-5 (Version None)
Quarter: 2011Q3

REPORT INFORMATION
  Report Type: 
  Country: None (occurrence: None)
  Receive Date: 20110811
  Receipt Date: 20110808
  Transmission Date: 20111222
  Serious: Yes (Life-Threatening, Other)
  Sender: FDA-Public Use
  Company Number: PHHY2011DK70667

PATIENT
  Sex: Female

DRUGS (1)
  1. ZOLEDRONOC ACID [Suspect]
     Dosage: UNK UKN, UNK
     Route: 042
     Dates: start: 20110712

REACTIONS (12)
  - NEUROGENIC SHOCK [None]
  - EYE MOVEMENT DISORDER [None]
  - PALLOR [None]
  - MALAISE [None]
  - NAUSEA [None]
  - BLOOD PRESSURE DIASTOLIC DECREASED [None]
  - APNOEA [None]
  - HEADACHE [None]
  - COLD SWEAT [None]
  - FATIGUE [None]
  - HYPERHIDROSIS [None]
  - DIZZINESS [None]
